FAERS Safety Report 24005025 (Version 3)
Quarter: 2024Q3

REPORT INFORMATION
  Report Type: Report from Study
  Country: US (occurrence: US)
  Receive Date: 20240624
  Receipt Date: 20240822
  Transmission Date: 20241017
  Serious: No
  Sender: APELLIS PHARMACEUTICALS
  Company Number: US-APELLIS-2024-APL-0000259

PATIENT
  Weight: 63.503 kg

DRUGS (1)
  1. PEGCETACOPLAN [Suspect]
     Active Substance: PEGCETACOPLAN
     Indication: C3 glomerulopathy
     Dosage: 1080.000MG BIW
     Route: 058
     Dates: start: 20231106, end: 20240529

REACTIONS (1)
  - Biopsy kidney abnormal [Not Recovered/Not Resolved]

NARRATIVE: CASE EVENT DATE: 20240420
